FAERS Safety Report 16201565 (Version 1)
Quarter: 2019Q2

REPORT INFORMATION
  Report Type: Spontaneous
  Country: US (occurrence: US)
  Receive Date: 20190416
  Receipt Date: 20190416
  Transmission Date: 20190711
  Serious: No
  Sender: FDA-Public Use
  Company Number: US-BION-007790

PATIENT
  Age: 73 Year
  Sex: Male
  Weight: 84 kg

DRUGS (2)
  1. BABY ASPIRIN [Suspect]
     Active Substance: ASPIRIN
     Indication: PRODUCT USED FOR UNKNOWN INDICATION
  2. ALEVE [Suspect]
     Active Substance: NAPROXEN SODIUM
     Indication: PAIN
     Route: 048

REACTIONS (5)
  - Hypoaesthesia oral [Recovered/Resolved]
  - Product quality issue [Unknown]
  - Poor quality product administered [Not Recovered/Not Resolved]
  - Oral discomfort [Recovered/Resolved]
  - Therapeutic product effect incomplete [Not Recovered/Not Resolved]
